FAERS Safety Report 4801863-8 (Version None)
Quarter: 2005Q4

REPORT INFORMATION
  Report Type: 
  Country: None (occurrence: None)
  Receive Date: 20051011
  Receipt Date: 20050810
  Transmission Date: 20060501
  Serious: Yes (Hospitalization)
  Sender: FDA-Public Use
  Company Number: CIP05002194

PATIENT
  Age: 46 Year
  Sex: Female

DRUGS (6)
  1. ACTONEL [Suspect]
     Indication: OSTEOPOROSIS
  2. CELLCEPT [Concomitant]
  3. PREDNISONE [Concomitant]
  4. LEVOXYL [Concomitant]
  5. MAGNESIUM (MAGNESIUM) [Concomitant]
  6. TEA, GREEN (CAMELLIA SINENSIS) [Concomitant]

REACTIONS (28)
  - ACTIVATED PARTIAL THROMBOPLASTIN TIME PROLONGED [None]
  - ANEURYSM [None]
  - APHASIA [None]
  - ASTHENIA [None]
  - BLOOD PRESSURE DIASTOLIC INCREASED [None]
  - BLOOD UREA DECREASED [None]
  - BRAIN NEOPLASM [None]
  - BRAIN OEDEMA [None]
  - CEREBRAL INFARCTION [None]
  - CEREBROVASCULAR ACCIDENT [None]
  - CEREBROVASCULAR ARTERIOVENOUS MALFORMATION [None]
  - COGNITIVE DISORDER [None]
  - CONFUSIONAL STATE [None]
  - HAEMATOCRIT DECREASED [None]
  - HAEMATOMA [None]
  - HAEMOGLOBIN DECREASED [None]
  - HAEMORRHAGE INTRACRANIAL [None]
  - HEART RATE INCREASED [None]
  - LYMPHOCYTE PERCENTAGE DECREASED [None]
  - MEAN CELL HAEMOGLOBIN DECREASED [None]
  - MEAN CELL VOLUME ABNORMAL [None]
  - NECK PAIN [None]
  - NEUTROPHIL PERCENTAGE INCREASED [None]
  - RASH [None]
  - RED CELL DISTRIBUTION WIDTH INCREASED [None]
  - SENSATION OF HEAVINESS [None]
  - SKIN LESION [None]
  - WEIGHT DECREASED [None]
